FAERS Safety Report 5156146-6 (Version None)
Quarter: 2006Q4

REPORT INFORMATION
  Report Type: 
  Country: None (occurrence: None)
  Receive Date: 20061122
  Receipt Date: 20020613
  Transmission Date: 20070319
  Serious: Yes (Other)
  Sender: FDA-Public Use
  Company Number: FR-AVENTIS-200621785GDDC

PATIENT
  Age: 30 Year
  Sex: Female

DRUGS (1)
  1. CLOMID [Suspect]
     Indication: INFERTILITY
     Dosage: DOSE: 2 TBL
     Route: 048

REACTIONS (2)
  - DRUG EXPOSURE DURING PREGNANCY [None]
  - PANCYTOPENIA [None]
